FAERS Safety Report 9437680 (Version 2)
Quarter: 2013Q3

REPORT INFORMATION
  Report Type: Spontaneous
  Country: US (occurrence: US)
  Receive Date: 20130802
  Receipt Date: 20130827
  Transmission Date: 20140515
  Serious: Yes (Other)
  Sender: FDA-Public Use
  Company Number: US-ELI_LILLY_AND_COMPANY-US201307008487

PATIENT
  Sex: Male

DRUGS (3)
  1. HUMALOG LISPRO [Suspect]
     Indication: TYPE 1 DIABETES MELLITUS
     Dosage: 10 U, EVERY 6 HRS
     Dates: start: 20081023
  2. HUMALOG LISPRO [Suspect]
     Dosage: UNK, PRN
     Dates: start: 2003
  3. LANTUS [Concomitant]
     Dosage: UNK, EACH MORNING

REACTIONS (4)
  - Blood glucose increased [Recovered/Resolved]
  - Underdose [Recovered/Resolved]
  - Drug dose omission [Recovered/Resolved]
  - Blood glucose increased [Recovered/Resolved]
